FAERS Safety Report 8001023-6 (Version None)
Quarter: 2011Q4

REPORT INFORMATION
  Report Type: 
  Country: None (occurrence: None)
  Receive Date: 20111222
  Receipt Date: 20110525
  Transmission Date: 20120403
  Serious: No
  Sender: FDA-Public Use
  Company Number: US-GLAXOSMITHKLINE-A0929145A

PATIENT
  Sex: Female

DRUGS (11)
  1. FLONASE [Suspect]
     Indication: BRONCHITIS
     Route: 045
     Dates: start: 20070101
  2. NORVASC [Concomitant]
  3. MAXZIDE [Concomitant]
  4. HYDROCODONE [Concomitant]
  5. RANITIDINE [Concomitant]
  6. COREG [Concomitant]
  7. LORTAB [Concomitant]
  8. PROVENTIL [Concomitant]
  9. ZANTAC [Concomitant]
  10. ADVAIR DISKUS 100/50 [Concomitant]
  11. SYNTHROID [Concomitant]

REACTIONS (1)
  - DRUG INEFFECTIVE [None]
